FAERS Safety Report 16482078 (Version 3)
Quarter: 2020Q2

REPORT INFORMATION
  Report Type: Spontaneous
  Country: US (occurrence: US)
  Receive Date: 20190627
  Receipt Date: 20200512
  Transmission Date: 20200713
  Serious: No
  Sender: FDA-Public Use
  Company Number: US-SA-2019SA169316

PATIENT
  Sex: Male

DRUGS (10)
  1. PREVACID [Concomitant]
     Active Substance: LANSOPRAZOLE
  2. FISH OIL [Concomitant]
     Active Substance: FISH OIL
  3. LASIX [Concomitant]
     Active Substance: FUROSEMIDE
  4. PRALUENT [Suspect]
     Active Substance: ALIROCUMAB
     Indication: BLOOD CHOLESTEROL INCREASED
     Dosage: 75 MG, QOW
     Dates: start: 201905, end: 20200418
  5. SPIRIVA [Concomitant]
     Active Substance: TIOTROPIUM BROMIDE MONOHYDRATE
  6. IRON [Concomitant]
     Active Substance: IRON
  7. ROPINIROLE. [Concomitant]
     Active Substance: ROPINIROLE
     Indication: RESTLESS LEGS SYNDROME
  8. SPIRONOLACTONE. [Concomitant]
     Active Substance: SPIRONOLACTONE
     Dosage: 0.5 DF, HALF OF 25 MG TABLET
  9. BABY ASPIRIN [Concomitant]
     Active Substance: ASPIRIN
  10. FLOVENT [Concomitant]
     Active Substance: FLUTICASONE PROPIONATE
     Dosage: UNK

REACTIONS (5)
  - Injection site hypoaesthesia [Not Recovered/Not Resolved]
  - Injection site warmth [Unknown]
  - Ejection fraction decreased [Recovered/Resolved]
  - Injection site mass [Recovered/Resolved]
  - Injection site pain [Recovering/Resolving]

NARRATIVE: CASE EVENT DATE: 201907
